FAERS Safety Report 5046606-0 (Version None)
Quarter: 2006Q3

REPORT INFORMATION
  Report Type: 
  Country: None (occurrence: None)
  Receive Date: 20060705
  Receipt Date: 20060705
  Transmission Date: 20061208
  Serious: Yes (Hospitalization)
  Sender: FDA-Public Use
  Company Number: None

PATIENT
  Age: 62 Year
  Sex: Male
  Weight: 105.8 kg

DRUGS (5)
  1. TERAZOSIN HCL [Suspect]
     Indication: HYPERTENSION
     Dosage: 5 MG QD HS
     Dates: start: 20051101, end: 20060529
  2. ATENOLOL [Suspect]
     Indication: HYPERTENSION
     Dosage: 100 MG QD
     Dates: start: 20040201, end: 20060526
  3. CLINDAMYCIN [Concomitant]
  4. HYDROCHLOROTHIAZIDE [Concomitant]
  5. GLIPIZIDE [Concomitant]

REACTIONS (1)
  - SYNCOPE [None]
